FAERS Safety Report 23866287 (Version 1)
Quarter: 2024Q2

REPORT INFORMATION
  Report Type: Spontaneous
  Country: CN (occurrence: CN)
  Receive Date: 20240517
  Receipt Date: 20240517
  Transmission Date: 20240716
  Serious: Yes (Hospitalization)
  Sender: FDA-Public Use
  Company Number: CN-009507513-2405CHN003397

PATIENT
  Age: 65 Year
  Sex: Female

DRUGS (1)
  1. IMIPENEM AND CILASTATIN [Suspect]
     Active Substance: CILASTATIN SODIUM\IMIPENEM
     Indication: Anti-infective therapy
     Dosage: 1 GRAM (IMIPENEM 0.5G), Q6H
     Route: 042
     Dates: start: 20210210, end: 20210226

REACTIONS (1)
  - Secondary thrombocytosis [Recovering/Resolving]

NARRATIVE: CASE EVENT DATE: 20210201
